FAERS Safety Report 7081480-2 (Version None)
Quarter: 2010Q4

REPORT INFORMATION
  Report Type: 
  Country: None (occurrence: None)
  Receive Date: 20101102
  Receipt Date: 20101102
  Transmission Date: 20110411
  Serious: Yes (Hospitalization)
  Sender: FDA-Public Use
  Company Number: None

PATIENT
  Age: 64 Year
  Sex: Male
  Weight: 83 kg

DRUGS (1)
  1. CARBOPLATIN [Suspect]
     Indication: NEOPLASM
     Dosage: 450 MG ONCE IV
     Route: 042
     Dates: start: 20101005, end: 20101005

REACTIONS (1)
  - FEBRILE NEUTROPENIA [None]
